FAERS Safety Report 7460819-X (Version None)
Quarter: 2011Q2

REPORT INFORMATION
  Report Type: 
  Country: None (occurrence: None)
  Receive Date: 20110505
  Receipt Date: 20110427
  Transmission Date: 20111010
  Serious: Yes (Hospitalization)
  Sender: FDA-Public Use
  Company Number: US-BAXTER-2011BH014060

PATIENT
  Age: 18 Month
  Sex: Male
  Weight: 14 kg

DRUGS (16)
  1. GAMMAGARD LIQUID [Suspect]
     Indication: BLOOD IMMUNOGLOBULIN A DECREASED
     Route: 042
     Dates: start: 20110301, end: 20110301
  2. GAMMAGARD LIQUID [Suspect]
     Route: 042
     Dates: start: 20110201, end: 20110201
  3. MOTRIN [Concomitant]
     Indication: PYREXIA
     Route: 048
     Dates: start: 20110101
  4. GAMMAGARD LIQUID [Suspect]
     Route: 042
     Dates: start: 20110101, end: 20110101
  5. TRIAMCINOLONE [Concomitant]
     Indication: RASH ERYTHEMATOUS
     Route: 061
     Dates: start: 20110201
  6. GAMMAGARD LIQUID [Suspect]
     Indication: SELECTIVE IGM IMMUNODEFICIENCY
     Route: 042
     Dates: start: 20110301, end: 20110301
  7. GAMMAGARD LIQUID [Suspect]
     Route: 042
     Dates: start: 20110421, end: 20110421
  8. ZYRTEC [Concomitant]
     Indication: RASH ERYTHEMATOUS
     Route: 048
     Dates: start: 20110101
  9. GAMMAGARD LIQUID [Suspect]
     Route: 042
     Dates: start: 20110421, end: 20110421
  10. BENADRYL [Concomitant]
     Indication: RASH ERYTHEMATOUS
     Route: 048
     Dates: start: 20110101
  11. ACETAMINOPHEN [Concomitant]
     Indication: PYREXIA
     Route: 048
     Dates: start: 20110101
  12. GAMMAGARD LIQUID [Suspect]
     Route: 042
     Dates: start: 20110201, end: 20110201
  13. GAMMAGARD LIQUID [Suspect]
     Route: 042
     Dates: start: 20110101, end: 20110101
  14. NEXIUM [Concomitant]
     Indication: PRODUCT USED FOR UNKNOWN INDICATION
     Route: 048
  15. PULMICORT [Concomitant]
     Indication: ASTHMA
     Route: 055
  16. ALBUTEROL [Concomitant]
     Indication: ASTHMA
     Route: 055

REACTIONS (1)
  - CONVULSION [None]
